FAERS Safety Report 9880501 (Version 1)
Quarter: 2014Q1

REPORT INFORMATION
  Report Type: Spontaneous
  Country: DE (occurrence: ES)
  Receive Date: 20140207
  Receipt Date: 20140207
  Transmission Date: 20141002
  Serious: Yes (Death, Hospitalization)
  Sender: FDA-Public Use
  Company Number: DE-JNJFOC-20140202455

PATIENT
  Sex: Male

DRUGS (5)
  1. XARELTO [Suspect]
     Indication: THROMBOSIS
     Route: 048
  2. ASS [Suspect]
     Indication: THROMBOSIS
     Route: 065
  3. ASS [Suspect]
     Indication: STENT PLACEMENT
     Route: 065
  4. CLOPIDOGREL [Suspect]
     Indication: THROMBOSIS
     Route: 065
  5. CLOPIDOGREL [Suspect]
     Indication: STENT PLACEMENT
     Route: 065

REACTIONS (4)
  - Death [Fatal]
  - Haematoma [Unknown]
  - Epistaxis [Unknown]
  - Haematoma [Unknown]
